FAERS Safety Report 13368904 (Version 1)
Quarter: 2017Q1

REPORT INFORMATION
  Report Type: Spontaneous
  Country: US (occurrence: US)
  Receive Date: 20170323
  Receipt Date: 20170323
  Transmission Date: 20170429
  Serious: Yes (Hospitalization)
  Sender: FDA-Public Use
  Company Number: None

PATIENT
  Age: 57 Year
  Sex: Female
  Weight: 55.39 kg

DRUGS (9)
  1. AZATHIOPRINE. [Suspect]
     Active Substance: AZATHIOPRINE
     Indication: CUTANEOUS LUPUS ERYTHEMATOSUS
     Dates: start: 20170208, end: 20170208
  2. BUMETANIDE. [Concomitant]
     Active Substance: BUMETANIDE
  3. PREDNISONE. [Concomitant]
     Active Substance: PREDNISONE
  4. LISINOPRIL. [Concomitant]
     Active Substance: LISINOPRIL
  5. FOLIC ACID. [Concomitant]
     Active Substance: FOLIC ACID
  6. CARVEDILOL. [Concomitant]
     Active Substance: CARVEDILOL
  7. VITAMIN D [Concomitant]
     Active Substance: CHOLECALCIFEROL
  8. HYDROXYCLOROQUINE [Concomitant]
     Active Substance: HYDROXYCHLOROQUINE
  9. ATORVASTATIN CAL HYDROXZINE [Concomitant]

REACTIONS (4)
  - Vomiting [None]
  - Dehydration [None]
  - Diarrhoea [None]
  - Renal injury [None]

NARRATIVE: CASE EVENT DATE: 20170208
